FAERS Safety Report 7928484-2 (Version None)
Quarter: 2011Q4

REPORT INFORMATION
  Report Type: 
  Country: None (occurrence: None)
  Receive Date: 20111118
  Receipt Date: 20111114
  Transmission Date: 20120403
  Serious: Yes (Other)
  Sender: FDA-Public Use
  Company Number: PHHY2011PT099808

PATIENT
  Sex: Female

DRUGS (2)
  1. PENICILLIN [Suspect]
     Dosage: UNK
  2. VOLTAREN [Suspect]
     Indication: CHEST PAIN
     Dosage: UNK
     Route: 042
     Dates: start: 20100501

REACTIONS (4)
  - DYSPNOEA [None]
  - OROPHARYNGEAL DISCOMFORT [None]
  - ERYTHEMA [None]
  - WHEEZING [None]
